FAERS Safety Report 23494088 (Version 4)
Quarter: 2025Q3

REPORT INFORMATION
  Report Type: Spontaneous
  Country: US (occurrence: US)
  Receive Date: 20240207
  Receipt Date: 20250730
  Transmission Date: 20251020
  Serious: Yes (Other)
  Sender: PFIZER
  Company Number: US-PFIZER INC-PV202400017628

PATIENT
  Age: 61 Year
  Sex: Male

DRUGS (1)
  1. ZARONTIN [Suspect]
     Active Substance: ETHOSUXIMIDE
     Dosage: 500 MG, 2X/DAY (250MG 2 IN THE MORNING, 2 AT NIGHT)
     Route: 048

REACTIONS (5)
  - Weight increased [Unknown]
  - Blood sodium increased [Unknown]
  - Swelling [Unknown]
  - Injury [Unknown]
  - Throat irritation [Unknown]
